FAERS Safety Report 6147855-0 (Version None)
Quarter: 2009Q2

REPORT INFORMATION
  Report Type: 
  Country: None (occurrence: None)
  Receive Date: 20090402
  Receipt Date: 20090202
  Transmission Date: 20091009
  Serious: Yes (Other)
  Sender: FDA-Public Use
  Company Number: 2009S1000019

PATIENT
  Weight: 4.18 kg

DRUGS (1)
  1. ACITRETIN [Suspect]
     Dosage: TRPL
     Route: 064

REACTIONS (5)
  - AMNIORRHEXIS [None]
  - CAESAREAN SECTION [None]
  - DRUG EXPOSURE DURING PREGNANCY [None]
  - PREGNANCY [None]
  - PREMATURE RUPTURE OF MEMBRANES [None]
